FAERS Safety Report 4384818-X (Version None)
Quarter: 2004Q2

REPORT INFORMATION
  Report Type: 
  Country: None (occurrence: None)
  Receive Date: 20040625
  Receipt Date: 20040603
  Transmission Date: 20050107
  Serious: Yes (Hospitalization)
  Sender: FDA-Public Use
  Company Number: AT-BRISTOL-MYERS SQUIBB COMPANY-12604245

PATIENT
  Age: 67 Year
  Sex: Male

DRUGS (7)
  1. CETUXIMAB [Suspect]
     Indication: COLORECTAL CANCER
     Dosage: DOSE DELAYED/OMITTED
     Route: 042
     Dates: start: 20040526, end: 20040526
  2. IRINOTECAN [Suspect]
     Indication: COLORECTAL CANCER
     Route: 042
     Dates: start: 20040526, end: 20040526
  3. TRIAZOLAM [Concomitant]
     Route: 048
  4. ASCORBIC ACID [Concomitant]
     Route: 048
     Dates: end: 20040602
  5. ASPIRIN [Concomitant]
     Route: 048
     Dates: end: 20040602
  6. LOPERAMIDE HCL [Concomitant]
     Dates: start: 20040530, end: 20040602
  7. METOCLOPRAMIDE [Concomitant]
     Dates: start: 20040530

REACTIONS (2)
  - COLITIS [None]
  - FEBRILE NEUTROPENIA [None]
